FAERS Safety Report 24068695 (Version 1)
Quarter: 2024Q3

REPORT INFORMATION
  Report Type: Report from Study
  Country: US (occurrence: US)
  Receive Date: 20240710
  Receipt Date: 20240710
  Transmission Date: 20241016
  Serious: No
  Sender: ROCHE
  Company Number: US-ROCHE-3558374

PATIENT
  Age: 73 Year
  Sex: Female

DRUGS (1)
  1. ROZLYTREK [Suspect]
     Active Substance: ENTRECTINIB
     Indication: Salivary gland cancer
     Dosage: TAKE 2 CAPSULE(S) BY MOUTH EVERY DAY
     Route: 048

REACTIONS (3)
  - Neuralgia [Unknown]
  - Pain [Unknown]
  - Off label use [Unknown]
